FAERS Safety Report 4553473-8 (Version None)
Quarter: 2005Q1

REPORT INFORMATION
  Report Type: 
  Country: None (occurrence: None)
  Receive Date: 20050112
  Receipt Date: 20041223
  Transmission Date: 20050727
  Serious: Yes (Other)
  Sender: FDA-Public Use
  Company Number: EWC041242025

PATIENT
  Age: 44 Year
  Sex: Female
  Weight: 60 kg

DRUGS (3)
  1. PROZAC [Suspect]
     Indication: MAJOR DEPRESSION
     Dosage: 20 MG/2 DAY
     Dates: start: 20031101, end: 20040801
  2. LORAZEPAM [Concomitant]
  3. STILNOCT (ZOLPIDEM TARTRATE) [Concomitant]

REACTIONS (4)
  - ACCOMMODATION DISORDER [None]
  - EYE PAIN [None]
  - MYDRIASIS [None]
  - PUPILS UNEQUAL [None]
